FAERS Safety Report 7503922-8 (Version None)
Quarter: 2011Q2

REPORT INFORMATION
  Report Type: 
  Country: None (occurrence: None)
  Receive Date: 20110525
  Receipt Date: 20110425
  Transmission Date: 20111010
  Serious: Yes (Hospitalization, Other)
  Sender: FDA-Public Use
  Company Number: US-BAYER-201041786NA

PATIENT
  Age: 17 Year
  Sex: Female
  Weight: 72.562 kg

DRUGS (5)
  1. IMITREX [Concomitant]
     Indication: MIGRAINE
     Dosage: 25 MG, PRN
     Route: 048
     Dates: start: 20071220, end: 20071224
  2. PROCHLORPERAZINE TAB [Concomitant]
     Indication: NAUSEA
     Dosage: 5 MG, UNK
     Dates: start: 20071220, end: 20071224
  3. IMITREX [Concomitant]
     Indication: HEADACHE
     Dosage: 50 MG, UNK
     Route: 048
     Dates: start: 20071220, end: 20071224
  4. YASMIN [Suspect]
     Indication: CONTRACEPTION
     Dosage: UNK
     Route: 048
     Dates: start: 20060820, end: 20071223
  5. PROCHLORPERAZINE TAB [Concomitant]
     Indication: VOMITING

REACTIONS (21)
  - DEPRESSION [None]
  - VOMITING [None]
  - PAPILLOEDEMA [None]
  - FALL [None]
  - MUSCLE TWITCHING [None]
  - MOBILITY DECREASED [None]
  - ALTERED VISUAL DEPTH PERCEPTION [None]
  - BALANCE DISORDER [None]
  - BLINDNESS UNILATERAL [None]
  - DEHYDRATION [None]
  - ASTHENIA [None]
  - MENTAL STATUS CHANGES [None]
  - JUGULAR VEIN THROMBOSIS [None]
  - CEREBRAL INFARCTION [None]
  - VISUAL ACUITY REDUCED [None]
  - CEREBRAL THROMBOSIS [None]
  - CONVULSION [None]
  - INTRACRANIAL PRESSURE INCREASED [None]
  - ANXIETY [None]
  - HYPERSOMNIA [None]
  - APHASIA [None]
